FAERS Safety Report 25273708 (Version 1)
Quarter: 2025Q2

REPORT INFORMATION
  Report Type: Spontaneous
  Country: US (occurrence: US)
  Receive Date: 20250506
  Receipt Date: 20250506
  Transmission Date: 20250717
  Serious: No
  Sender: MARIUS PHARMACEUTICALS
  Company Number: US-MARIUS PHARMACEUTICALS, LLC-2025US001740

PATIENT

DRUGS (4)
  1. KYZATREX [Suspect]
     Active Substance: TESTOSTERONE UNDECANOATE
     Indication: Blood testosterone decreased
     Dosage: 400 MG BID
     Route: 048
     Dates: start: 20250109, end: 2025
  2. KYZATREX [Suspect]
     Active Substance: TESTOSTERONE UNDECANOATE
     Dosage: 200 MG BID
     Route: 048
     Dates: start: 2025, end: 20250401
  3. TADALAFIL [Concomitant]
     Active Substance: TADALAFIL
     Dosage: UNK, QD
  4. VITAMINS [Concomitant]
     Active Substance: VITAMINS

REACTIONS (5)
  - Blood testosterone decreased [Unknown]
  - Vomiting [Unknown]
  - Influenza [Unknown]
  - Ear pain [Unknown]
  - Respiratory tract congestion [Unknown]

NARRATIVE: CASE EVENT DATE: 20250110
